FAERS Safety Report 9981488 (Version 1)
Quarter: 2014Q1

REPORT INFORMATION
  Report Type: Spontaneous
  Country: US (occurrence: US)
  Receive Date: 20140307
  Receipt Date: 20140307
  Transmission Date: 20141002
  Serious: No
  Sender: FDA-Public Use
  Company Number: US-GLAXOSMITHKLINE-A1051327A

PATIENT
  Sex: Male

DRUGS (2)
  1. FABIOR [Suspect]
     Indication: ACROCHORDON
     Dosage: 1APP PER DAY
     Route: 061
     Dates: start: 20131115
  2. STATINS [Concomitant]

REACTIONS (1)
  - Erythema [Not Recovered/Not Resolved]
